FAERS Safety Report 7787650-X (Version None)
Quarter: 2011Q3

REPORT INFORMATION
  Report Type: 
  Country: None (occurrence: None)
  Receive Date: 20110929
  Receipt Date: 20110920
  Transmission Date: 20111222
  Serious: Yes (Other)
  Sender: FDA-Public Use
  Company Number: US-ASTRAZENECA-2011SE37711

PATIENT
  Age: 61 Year
  Sex: Female
  Weight: 70.3 kg

DRUGS (21)
  1. CRESTOR [Suspect]
     Indication: BLOOD CHOLESTEROL ABNORMAL
     Route: 048
  2. OXYCODONE HCL AND ACETAMINOPHEN [Concomitant]
     Dosage: 5MG-325 MG EVERY SIX HOURS AS NEEDED
     Route: 048
  3. ADVAIR DISKUS 100/50 [Concomitant]
     Dosage: 250 MCG -50 MCG PER DOSE ONE PUFF TWO TIMES EVERY DAY IN THE MORNING AND EVENING
     Route: 055
  4. MICRO-K [Concomitant]
     Route: 048
  5. DEXILANT [Concomitant]
     Route: 048
  6. KLONOPIN [Concomitant]
     Route: 048
  7. LAMICTAL [Concomitant]
     Route: 048
  8. ALBUTEROL SULFATE [Concomitant]
     Dosage: TWO PUFF BY 4-6 HOURS AS NEEDED
     Route: 055
  9. KLONOPIN [Concomitant]
     Route: 048
  10. COLESTIPOL HYDROCHLORIDE [Concomitant]
     Dosage: 1 GM THREE TIMES EVERY WEEK
     Route: 048
  11. ASPIRIN [Concomitant]
     Route: 048
  12. SYNTHROID [Concomitant]
     Route: 048
  13. MECLIZINE HCL [Concomitant]
     Route: 048
  14. VESICARE [Concomitant]
     Route: 048
  15. LASIX [Concomitant]
     Route: 048
  16. CELEXA [Concomitant]
     Route: 048
  17. PHENERGAN HCL [Concomitant]
     Dosage: 25 MG EVERY 6 HOURS AS NEEDED
     Route: 048
  18. DEXILANT [Concomitant]
     Route: 048
  19. CELEXA [Concomitant]
     Route: 048
  20. LOSARTAN POTASSIUM [Concomitant]
     Route: 048
  21. IBUPROFEN [Concomitant]
     Route: 048

REACTIONS (6)
  - CORONARY ARTERY DISEASE [None]
  - GAIT DISTURBANCE [None]
  - SCIATICA [None]
  - CARDIOMYOPATHY [None]
  - CHEST DISCOMFORT [None]
  - DYSPNOEA [None]
